FAERS Safety Report 8228390-2 (Version None)
Quarter: 2012Q1

REPORT INFORMATION
  Report Type: 
  Country: None (occurrence: None)
  Receive Date: 20120322
  Receipt Date: 20110913
  Transmission Date: 20120608
  Serious: No
  Sender: FDA-Public Use
  Company Number: US-BRISTOL-MYERS SQUIBB COMPANY-15947856

PATIENT
  Age: 48 Year
  Sex: Female
  Weight: 100 kg

DRUGS (1)
  1. ERBITUX [Suspect]
     Dosage: 1ST INFUSION STARTED 8-10 WEEKS AGO

REACTIONS (6)
  - DRY SKIN [None]
  - PAIN IN EXTREMITY [None]
  - BURNING SENSATION [None]
  - ACNE [None]
  - ONYCHOCLASIS [None]
  - RASH [None]
